FAERS Safety Report 5754994-2 (Version None)
Quarter: 2008Q2

REPORT INFORMATION
  Report Type: 
  Country: None (occurrence: None)
  Receive Date: 20080529
  Receipt Date: 20080529
  Transmission Date: 20081010
  Serious: Yes (Hospitalization)
  Sender: FDA-Public Use
  Company Number: None

PATIENT
  Age: 17 Year
  Sex: Male
  Weight: 58.514 kg

DRUGS (1)
  1. 44 SORE THROAT SPRAY NORMAL VICKS [Suspect]
     Indication: PHARYNGOLARYNGEAL PAIN
     Dosage: SPRAYED ONCE  STOPPED TONUMBNESS
     Dates: start: 20080526, end: 20080526

REACTIONS (3)
  - FACIAL PALSY [None]
  - HYPOAESTHESIA [None]
  - VIRAL INFECTION [None]
